FAERS Safety Report 17573043 (Version 2)
Quarter: 2020Q2

REPORT INFORMATION
  Report Type: Report from Study
  Country: ZA (occurrence: ZA)
  Receive Date: 20200323
  Receipt Date: 20200406
  Transmission Date: 20200713
  Serious: Yes (Hospitalization, Other)
  Sender: FDA-Public Use
  Company Number: NVSC2019ZA032187

PATIENT
  Age: 44 Year
  Sex: Male
  Weight: 100 kg

DRUGS (3)
  1. COSENTYX [Suspect]
     Active Substance: SECUKINUMAB
     Dosage: UNK
     Route: 065
  2. COSENTYX [Suspect]
     Active Substance: SECUKINUMAB
     Dosage: 150 MG, QW
     Route: 058
     Dates: start: 20191113
  3. COSENTYX [Suspect]
     Active Substance: SECUKINUMAB
     Indication: ANKYLOSING SPONDYLITIS
     Dosage: 150 MG, QW
     Route: 058
     Dates: start: 20191106

REACTIONS (14)
  - Chillblains [Not Recovered/Not Resolved]
  - Tooth abscess [Unknown]
  - Immunodeficiency [Unknown]
  - Asthenia [Unknown]
  - Bacterial infection [Recovering/Resolving]
  - Gastrooesophageal reflux disease [Recovering/Resolving]
  - Influenza [Recovering/Resolving]
  - Pain [Unknown]
  - Headache [Unknown]
  - Fatigue [Recovering/Resolving]
  - Stomatitis [Recovered/Resolved]
  - Therapeutic product effect decreased [Unknown]
  - Noninfective gingivitis [Not Recovered/Not Resolved]
  - Lymphadenopathy [Not Recovered/Not Resolved]

NARRATIVE: CASE EVENT DATE: 201911
